FAERS Safety Report 11068534 (Version 1)
Quarter: 2015Q2

REPORT INFORMATION
  Report Type: Spontaneous
  Country: US (occurrence: None)
  Receive Date: 20150424
  Receipt Date: 20150424
  Transmission Date: 20150821
  Serious: Yes (Congenital Anomaly)
  Sender: FDA-Public Use
  Company Number: None

PATIENT
  Sex: Male
  Weight: 3.18 kg

DRUGS (1)
  1. GLYBURIDE. [Suspect]
     Active Substance: GLYBURIDE
     Indication: GESTATIONAL DIABETES
     Dosage: HALF PILL
     Route: 048

REACTIONS (3)
  - Maternal drugs affecting foetus [None]
  - Hydrocephalus [None]
  - Maternal exposure during pregnancy [None]

NARRATIVE: CASE EVENT DATE: 20120404
